FAERS Safety Report 6478257-5 (Version None)
Quarter: 2009Q4

REPORT INFORMATION
  Report Type: 
  Country: None (occurrence: None)
  Receive Date: 20091207
  Receipt Date: 20090127
  Transmission Date: 20100525
  Serious: No
  Sender: FDA-Public Use
  Company Number: US-AMGEN-KDL330551

PATIENT
  Sex: Female

DRUGS (1)
  1. ENBREL [Suspect]
     Indication: RHEUMATOID ARTHRITIS
     Route: 058
     Dates: start: 20081001

REACTIONS (5)
  - BLISTER [None]
  - INJECTION SITE HAEMATOMA [None]
  - OPEN WOUND [None]
  - PAIN [None]
  - RHEUMATOID ARTHRITIS [None]
